FAERS Safety Report 12987644 (Version 2)
Quarter: 2016Q4

REPORT INFORMATION
  Report Type: Spontaneous
  Country: US (occurrence: US)
  Receive Date: 20161130
  Receipt Date: 20161220
  Transmission Date: 20170207
  Serious: Yes (Other)
  Sender: FDA-Public Use
  Company Number: US-BAYER-2016-224662

PATIENT
  Age: 36 Year
  Sex: Female
  Weight: 94.33 kg

DRUGS (3)
  1. MIRENA [Suspect]
     Active Substance: LEVONORGESTREL
     Indication: CONTRACEPTION
     Dosage: UNK
     Dates: start: 20160707, end: 20161118
  2. DIBUCAINE. [Concomitant]
     Active Substance: DIBUCAINE
  3. MIRENA [Suspect]
     Active Substance: LEVONORGESTREL
     Indication: CONTRACEPTION
     Dosage: 20 MCG/24HR, CONT
     Route: 015
     Dates: start: 20160707, end: 20161118

REACTIONS (5)
  - Genital haemorrhage [Recovered/Resolved]
  - Abdominal pain lower [Recovered/Resolved]
  - Coital bleeding [Not Recovered/Not Resolved]
  - Uterine leiomyoma [Not Recovered/Not Resolved]
  - Device expulsion [None]

NARRATIVE: CASE EVENT DATE: 2016
